FAERS Safety Report 10249357 (Version 2)
Quarter: 2014Q2

REPORT INFORMATION
  Report Type: Spontaneous
  Country: JP (occurrence: JP)
  Receive Date: 20140620
  Receipt Date: 20140627
  Transmission Date: 20141212
  Serious: Yes (Hospitalization)
  Sender: FDA-Public Use
  Company Number: JP-PFIZER INC-2014167715

PATIENT
  Age: 76 Year
  Sex: Female
  Weight: 38 kg

DRUGS (10)
  1. ZOSYN [Suspect]
     Indication: PNEUMONIA BACTERIAL
     Dosage: 4.5 G, 3X/DAY
     Route: 041
     Dates: start: 20140510, end: 20140514
  2. ROCEPHIN [Suspect]
     Indication: PNEUMONIA BACTERIAL
     Dosage: 2 G, DAILY
     Route: 041
     Dates: start: 20140507, end: 20140510
  3. LACTEC [Concomitant]
     Indication: DEHYDRATION
     Dosage: 1000 ML, DAILY
     Route: 041
     Dates: start: 20140507, end: 20140508
  4. BFLUID [Concomitant]
     Indication: DEHYDRATION
     Dosage: 1000 ML, DAILY
     Route: 041
     Dates: start: 20140509, end: 20140517
  5. SIGMART [Concomitant]
     Indication: ANGINA PECTORIS
     Dosage: 7.5 MG, DAILY
     Route: 048
  6. BIOFERMIN R [Concomitant]
     Indication: PROPHYLAXIS
     Dosage: 3 G, DAILY
     Route: 048
     Dates: start: 20140508, end: 20140522
  7. AMBROXOL HYDROCHLORIDE [Concomitant]
     Indication: PNEUMONIA BACTERIAL
     Dosage: 45 MG, DAILY
     Route: 048
     Dates: start: 20140508
  8. HOKUNALIN [Concomitant]
     Indication: PNEUMONIA BACTERIAL
     Dosage: 2 MG/DAY OD
     Dates: start: 20140509
  9. LENDORMIN [Concomitant]
     Indication: INSOMNIA
     Dosage: 0.25 MG, DAILY
     Route: 048
  10. LOXONIN [Concomitant]
     Indication: PNEUMONIA BACTERIAL
     Dosage: 60 MG, DAILY
     Route: 048

REACTIONS (1)
  - Pneumonitis [Recovering/Resolving]
